FAERS Safety Report 5829708-8 (Version None)
Quarter: 2008Q3

REPORT INFORMATION
  Report Type: 
  Country: None (occurrence: None)
  Receive Date: 20080729
  Receipt Date: 20080715
  Transmission Date: 20090109
  Serious: Yes (Hospitalization, Disabling)
  Sender: FDA-Public Use
  Company Number: PIR# 0806057

PATIENT
  Age: 71 Year
  Sex: Male
  Weight: 68.0396 kg

DRUGS (1)
  1. BALANCED SALT [Suspect]

REACTIONS (3)
  - CATARACT OPERATION COMPLICATION [None]
  - ENDOPHTHALMITIS [None]
  - EYE DISORDER [None]
